FAERS Safety Report 25329583 (Version 1)
Quarter: 2025Q2

REPORT INFORMATION
  Report Type: Spontaneous
  Country: FR (occurrence: FR)
  Receive Date: 20250519
  Receipt Date: 20250519
  Transmission Date: 20250716
  Serious: Yes (Hospitalization)
  Sender: ACCORD
  Company Number: None

PATIENT
  Age: 9 Year
  Sex: Female
  Weight: 31.9 kg

DRUGS (3)
  1. LEVETIRACETAM [Suspect]
     Active Substance: LEVETIRACETAM
     Indication: Brain empyema
     Dosage: 660MG/12 HOURS
     Dates: start: 20250303, end: 20250404
  2. MEROPENEM [Suspect]
     Active Substance: MEROPENEM
     Indication: Brain empyema
     Dosage: 1200MG/8 HOURS
     Dates: start: 20250314, end: 20250404
  3. ACETAMINOPHEN [Concomitant]
     Active Substance: ACETAMINOPHEN
     Indication: Pyrexia
     Dates: start: 20250313

REACTIONS (4)
  - Drug reaction with eosinophilia and systemic symptoms [Recovering/Resolving]
  - Pancytopenia [Recovered/Resolved]
  - Hepatic cytolysis [Recovering/Resolving]
  - Rash erythematous [Recovered/Resolved]

NARRATIVE: CASE EVENT DATE: 20250403
